FAERS Safety Report 9694814 (Version 3)
Quarter: 2014Q3

REPORT INFORMATION
  Report Type: Spontaneous
  Country: JP (occurrence: JP)
  Receive Date: 20131119
  Receipt Date: 20140811
  Transmission Date: 20150326
  Serious: Yes (Death)
  Sender: FDA-Public Use
  Company Number: JP-AMGEN-JPNSP2013081140

PATIENT
  Age: 80 Year
  Sex: Male
  Weight: 46 kg

DRUGS (9)
  1. FLUOROURACIL. [Suspect]
     Active Substance: FLUOROURACIL
     Dosage: 3343 MG, Q2WEEKS
     Route: 041
     Dates: start: 20130926, end: 20131102
  2. DEXART [Concomitant]
     Active Substance: DEXAMETHASONE SODIUM PHOSPHATE
     Dosage: 6.6 MG, Q2WK
     Route: 050
     Dates: start: 20130926
  3. POLARAMINE [Concomitant]
     Active Substance: DEXCHLORPHENIRAMINE MALEATE
     Dosage: 5 MG, Q2WK
     Route: 050
     Dates: start: 20130926
  4. VECTIBIX [Suspect]
     Active Substance: PANITUMUMAB
     Dosage: 220 MG, Q2WK
     Route: 041
     Dates: start: 20131031, end: 20131031
  5. LEVOFOLINATE [Concomitant]
     Active Substance: LEVOLEUCOVORIN CALCIUM
     Indication: COLON CANCER
     Dosage: 278 MG, Q2WK
     Route: 041
     Dates: start: 20130926, end: 20131031
  6. ZANTAC [Concomitant]
     Active Substance: RANITIDINE HYDROCHLORIDE
     Dosage: 50 MG, Q2WEEKS
     Route: 065
     Dates: start: 20130926
  7. GRANISETRON [Concomitant]
     Active Substance: GRANISETRON
     Dosage: 3 MG, Q2WK
     Route: 050
     Dates: start: 20130926
  8. VECTIBIX [Suspect]
     Active Substance: PANITUMUMAB
     Indication: COLON CANCER
     Dosage: 276 MG, Q2WK
     Route: 041
     Dates: start: 20130926, end: 20131010
  9. FLUOROURACIL. [Suspect]
     Active Substance: FLUOROURACIL
     Indication: COLON CANCER
     Dosage: 557 MG, Q2WEEKS
     Route: 040
     Dates: start: 20130926, end: 20131031

REACTIONS (3)
  - Death [Fatal]
  - Blood pressure increased [Recovering/Resolving]
  - Asthenia [Unknown]

NARRATIVE: CASE EVENT DATE: 20131010
